FAERS Safety Report 18730374 (Version 1)
Quarter: 2021Q1

REPORT INFORMATION
  Report Type: Spontaneous
  Country: US (occurrence: US)
  Receive Date: 20210112
  Receipt Date: 20210112
  Transmission Date: 20210419
  Serious: No
  Sender: FDA-Public Use
  Company Number: US-INTRA-CELLULAR THERAPIES, INC.-2020ICT00233

PATIENT
  Sex: Female

DRUGS (2)
  1. CAPLYTA [Suspect]
     Active Substance: LUMATEPERONE
     Indication: PARKINSONISM
  2. CAPLYTA [Suspect]
     Active Substance: LUMATEPERONE
     Indication: PARKINSON^S DISEASE
     Dosage: UNK

REACTIONS (3)
  - Off label use [Recovered/Resolved]
  - Rash [Unknown]
  - Intentional misuse of drug delivery system [Unknown]
